FAERS Safety Report 13755143 (Version 2)
Quarter: 2020Q3

REPORT INFORMATION
  Report Type: Spontaneous
  Country: US (occurrence: US)
  Receive Date: 20170714
  Receipt Date: 20200807
  Transmission Date: 20201102
  Serious: Yes (Other)
  Sender: FDA-Public Use
  Company Number: US-ELI_LILLY_AND_COMPANY-US201707001425

PATIENT
  Age: 64 Year
  Sex: Female

DRUGS (2)
  1. VITAMIN B [Concomitant]
     Active Substance: VITAMIN B
     Indication: PRODUCT USED FOR UNKNOWN INDICATION
     Dosage: UNK
  2. FORTEO [Suspect]
     Active Substance: TERIPARATIDE
     Indication: OSTEOPOROSIS
     Dosage: 20 UG, UNKNOWN
     Route: 058
     Dates: start: 201604, end: 201803

REACTIONS (5)
  - Toothache [Unknown]
  - Toothache [Not Recovered/Not Resolved]
  - Loose tooth [Unknown]
  - Osteonecrosis [Unknown]
  - Pulpitis dental [Unknown]

NARRATIVE: CASE EVENT DATE: 20200717
